FAERS Safety Report 7860954-8 (Version None)
Quarter: 2011Q4

REPORT INFORMATION
  Report Type: 
  Country: None (occurrence: None)
  Receive Date: 20111027
  Receipt Date: 20111020
  Transmission Date: 20120403
  Serious: Yes (Hospitalization, Other)
  Sender: FDA-Public Use
  Company Number: US-SANOFI-AVENTIS-2011SA069251

PATIENT
  Age: 89 Year
  Sex: Female

DRUGS (5)
  1. CARAFATE [Concomitant]
  2. PLAVIX [Suspect]
     Route: 048
     Dates: start: 19981201
  3. PLAVIX [Suspect]
     Indication: STENT PLACEMENT
     Route: 048
     Dates: start: 19981201
  4. FAMOTIDINE [Concomitant]
  5. NEXIUM [Concomitant]
     Dates: start: 20060101

REACTIONS (14)
  - MELAENA [None]
  - HEARING IMPAIRED [None]
  - OSTEOPOROSIS [None]
  - BODY HEIGHT DECREASED [None]
  - MACULAR DEGENERATION [None]
  - ABDOMINAL DISTENSION [None]
  - VISUAL IMPAIRMENT [None]
  - DYSPHONIA [None]
  - COUGH [None]
  - GASTROOESOPHAGEAL REFLUX DISEASE [None]
  - BACK PAIN [None]
  - CONDITION AGGRAVATED [None]
  - DYSPHAGIA [None]
  - STENT PLACEMENT [None]
